FAERS Safety Report 5738381-9 (Version None)
Quarter: 2008Q2

REPORT INFORMATION
  Report Type: 
  Country: None (occurrence: None)
  Receive Date: 20080513
  Receipt Date: 20080501
  Transmission Date: 20081010
  Serious: Yes (Other)
  Sender: FDA-Public Use
  Company Number: 2008011486

PATIENT
  Age: 68 Year
  Sex: Female
  Weight: 66.6788 kg

DRUGS (5)
  1. LISTERINE WHITENING PRE-BRUSH RINSE (NO ACTIVE INGREDIENT) [Suspect]
     Indication: DENTAL CARE
     Dosage: 15ML, TWICE A DAY,ORAL
     Route: 048
     Dates: start: 20080428, end: 20080501
  2. LOVASTATIN [Concomitant]
  3. LEVOTHYROXINE SODIUM [Concomitant]
  4. MULTI-VITAMINS [Concomitant]
  5. GLUCOSAMINE WITH MSM (GLUCOSAMINE, METHYLSULFONYLMETHANE) [Concomitant]

REACTIONS (2)
  - AGEUSIA [None]
  - GLOSSODYNIA [None]
